FAERS Safety Report 9256851 (Version 2)
Quarter: 2013Q2

REPORT INFORMATION
  Report Type: Spontaneous
  Country: GB (occurrence: None)
  Receive Date: 20130423
  Receipt Date: 20130501
  Transmission Date: 20140414
  Serious: Yes (Other)
  Sender: FDA-Public Use
  Company Number: AUR-APL-2013-03196

PATIENT
  Age: 49 Year
  Sex: Female
  Weight: 72.57 kg

DRUGS (10)
  1. CITALOPRAM [Suspect]
     Indication: ANXIETY
     Route: 048
     Dates: start: 2008
  2. CITALOPRAM [Suspect]
     Indication: DEPRESSION
     Route: 048
     Dates: start: 2008
  3. AVAMYS (FLUTICASONE FUROATE) [Concomitant]
  4. CANDESARTAN (CANDESARTAN) [Concomitant]
  5. DIAZEPAM (DIAZEPAM) [Concomitant]
  6. FISH OIL (FISH OIL) [Concomitant]
  7. MSM (METHYLSULFONYLMETHANE) [Concomitant]
  8. STARFLOWER OIL (BORAGO OFFICINALIS OIL) [Concomitant]
  9. TELFAST (FEXOFENADINE) [Concomitant]
  10. TRAMACET (PARACETAMOL W/TRAMADOL) [Concomitant]

REACTIONS (13)
  - Irritability [None]
  - Anger [None]
  - Arthralgia [None]
  - Myalgia [None]
  - Alopecia [None]
  - Increased appetite [None]
  - Fatigue [None]
  - Irritable bowel syndrome [None]
  - Neck pain [None]
  - Musculoskeletal pain [None]
  - Insomnia [None]
  - Withdrawal syndrome [None]
  - Quality of life decreased [None]
